FAERS Safety Report 13279130 (Version 1)
Quarter: 2017Q1

REPORT INFORMATION
  Report Type: Report from Study
  Country: US (occurrence: US)
  Receive Date: 20170228
  Receipt Date: 20170228
  Transmission Date: 20170428
  Serious: No
  Sender: FDA-Public Use
  Company Number: US-AMAG PHARMACEUTICALS, INC.-AMAG201600252

PATIENT

DRUGS (6)
  1. ASPIRIN (E.C.) [Concomitant]
     Active Substance: ASPIRIN
     Indication: PRE-ECLAMPSIA
     Dosage: 81 MG, QD
     Route: 048
     Dates: start: 20151027
  2. PRENATAL VITAMINS (PNV 95) [Concomitant]
     Dosage: 1 UNK, QD  28 MG IRON
     Route: 048
     Dates: start: 20151130
  3. MAKENA [Suspect]
     Active Substance: HYDROXYPROGESTERONE CAPROATE
     Indication: PRODUCT USED FOR UNKNOWN INDICATION
     Dosage: 250 MG, WEEKLY
     Route: 030
     Dates: start: 20151110
  4. INATAL ADVANCE [Concomitant]
     Active Substance: .ALPHA.-TOCOPHEROL ACETATE\ASCORBIC ACID\CALCIUM CARBONATE\CHOLECALCIFEROL\CUPRIC OXIDE\CYANOCOBALAMIN\DOCUSATE SODIUM\FOLIC ACID\IRON PENTACARBONYL\MAGNESIUM OXIDE\NIACINAMIDE\PYRIDOXINE HYDROCHLORIDE\RIBOFLAVIN\THIAMINE MONONITRATE\VITAMIN A\ZINC OXIDE
     Dosage: 1 TABS, QD   90 MG-1MG-50MG
     Route: 048
  5. FERROUS SULFATE. [Concomitant]
     Active Substance: FERROUS SULFATE
     Dosage: 325 MG, QD
     Route: 048
     Dates: start: 20160201
  6. FLOVENT HFA [Concomitant]
     Active Substance: FLUTICASONE PROPIONATE
     Dosage: 44 ?G, BID 2 PUFFS
     Route: 055
     Dates: start: 20151216

REACTIONS (3)
  - Foetal hypokinesia [Unknown]
  - Asthma [Recovered/Resolved]
  - Anaemia [Unknown]

NARRATIVE: CASE EVENT DATE: 20151213
